FAERS Safety Report 7032123-5 (Version None)
Quarter: 2010Q4

REPORT INFORMATION
  Report Type: 
  Country: None (occurrence: None)
  Receive Date: 20101007
  Receipt Date: 20091217
  Transmission Date: 20110411
  Serious: Yes (Life-Threatening, Hospitalization, Other)
  Sender: FDA-Public Use
  Company Number: ES-BRISTOL-MYERS SQUIBB COMPANY-14903975

PATIENT
  Age: 57 Year

DRUGS (4)
  1. CETUXIMAB [Suspect]
     Indication: COLON CANCER
     Dosage: 5MG/ML,14SEP09-11NOV09, 04NOV-2009, 16-NOV-09-ONGOING
     Route: 042
     Dates: start: 20090914
  2. OXALIPLATIN [Suspect]
     Indication: COLON CANCER
     Dosage: 14SEP09-11NOV09, RECENT ON 27OCT09, 16-NOV-09-ONGOING
     Route: 042
     Dates: start: 20090914
  3. FLUOROURACIL [Suspect]
     Indication: COLON CANCER
     Dosage: 14SEP09-11NOV09, 28OCT09, 16-NOV-09-ONGOING
     Route: 042
     Dates: start: 20090914
  4. FOLINIC ACID [Suspect]
     Indication: COLON CANCER
     Dosage: 14SEP09-11NOV09, 28OCT09, 16-NOV-09-ONGOING
     Route: 042
     Dates: start: 20090914

REACTIONS (1)
  - DEEP VEIN THROMBOSIS [None]
